FAERS Safety Report 9324021 (Version 3)
Quarter: 2013Q4

REPORT INFORMATION
  Report Type: Spontaneous
  Country: GB (occurrence: GB)
  Receive Date: 20130603
  Receipt Date: 20131016
  Transmission Date: 20140711
  Serious: Yes (Hospitalization)
  Sender: FDA-Public Use
  Company Number: GB-PFIZER INC-2013161866

PATIENT
  Age: 71 Year
  Sex: Male
  Weight: 85 kg

DRUGS (12)
  1. OXALIPLATIN [Suspect]
     Indication: PANCREATIC CARCINOMA
     Dosage: 180 MG, CYCLIC, EVERY 14 DAYS
     Route: 042
     Dates: start: 20121003, end: 20121205
  2. IRINOTECAN HCL [Suspect]
     Indication: PANCREATIC CARCINOMA
     Dosage: 370 MG, CYCLIC, EVERY 2 WEEKS
     Route: 042
     Dates: start: 20121003, end: 20121205
  3. FLUOROURACIL [Suspect]
     Indication: PANCREATIC CARCINOMA
     Dosage: 800 MG, UNK
     Route: 040
     Dates: start: 20121003, end: 20121207
  4. FLUOROURACIL [Suspect]
     Dosage: 4600 MG, CYCLIC (OVER 46 HOURS EVERY 14 DAYS)
     Route: 042
     Dates: start: 20121003, end: 20121207
  5. DEXAMETHASONE [Suspect]
     Indication: PROPHYLAXIS OF NAUSEA AND VOMITING
     Dosage: 4 MG, 2X/DAY
     Route: 048
     Dates: start: 20121003, end: 20121208
  6. FOLINIC ACID [Concomitant]
     Dosage: UNK
  7. DOMPERIDONE [Concomitant]
     Dosage: UNK
  8. GRANISETRON [Concomitant]
     Dosage: UNK
  9. CIPROFLOXACIN [Concomitant]
     Dosage: UNK
  10. CREON [Concomitant]
     Dosage: UNK
  11. THYROXINE [Concomitant]
     Dosage: UNK
  12. AMLODIPINE [Concomitant]
     Dosage: UNK

REACTIONS (3)
  - Hypomania [Recovered/Resolved with Sequelae]
  - Depressed mood [Unknown]
  - Malaise [Unknown]
